FAERS Safety Report 26069133 (Version 1)
Quarter: 2025Q4

REPORT INFORMATION
  Report Type: Spontaneous
  Country: US (occurrence: None)
  Receive Date: 20251119
  Receipt Date: 20251119
  Transmission Date: 20260117
  Serious: No
  Sender: FDA-CTU
  Company Number: None

PATIENT
  Age: 46 Year
  Sex: Female

DRUGS (1)
  1. TOLVAPTAN [Suspect]
     Active Substance: TOLVAPTAN
     Indication: Congenital cystic kidney disease
     Dosage: 0MG/15MG  BID ORAL ?
     Route: 048
     Dates: start: 20251007, end: 20251111

REACTIONS (2)
  - Migraine [None]
  - Muscle spasms [None]

NARRATIVE: CASE EVENT DATE: 20251111
